FAERS Safety Report 8762515 (Version 2)
Quarter: 2012Q4

REPORT INFORMATION
  Report Type: 
  Country: US (occurrence: US)
  Receive Date: 20120829
  Receipt Date: 20120927
  Transmission Date: 20130627
  Serious: No
  Sender: FDA-Public Use
  Company Number: US-PFIZER INC-2012209732

PATIENT
  Age: 42 Year
  Sex: Female

DRUGS (1)
  1. RAPAMUNE [Suspect]
     Indication: LYMPHANGIOLEIOMYOMATOSIS
     Dosage: 2 mg, 1x/day
     Dates: start: 20120417

REACTIONS (2)
  - Rash [Unknown]
  - Off label use [Unknown]
